FAERS Safety Report 21608456 (Version 7)
Quarter: 2023Q2

REPORT INFORMATION
  Report Type: Spontaneous
  Country: US (occurrence: US)
  Receive Date: 20221117
  Receipt Date: 20230406
  Transmission Date: 20230722
  Serious: No
  Sender: FDA-Public Use
  Company Number: US-PFIZER INC-PV202200104593

PATIENT
  Age: 61 Year
  Sex: Female

DRUGS (19)
  1. IBRANCE [Suspect]
     Active Substance: PALBOCICLIB
     Indication: Breast cancer metastatic
     Dosage: 125 MG, ONCE A DAY FOR 21 DAYS FOLLOWED BY 7 DAYS OFF; REPEAT CYCLES
     Route: 048
     Dates: start: 20221006, end: 2022
  2. IBRANCE [Suspect]
     Active Substance: PALBOCICLIB
     Dosage: 125 MG, ONCE A DAY FOR 21 DAYS FOLLOWED BY 7 DAYS OFF; REPEAT CYCLES
     Route: 048
     Dates: start: 2022, end: 2022
  3. IBRANCE [Suspect]
     Active Substance: PALBOCICLIB
     Dosage: 125 MG, DAILY FOR 21 DAYS, THEN 7 DAYS OFF
     Route: 048
  4. IBRANCE [Suspect]
     Active Substance: PALBOCICLIB
     Dosage: 100 MG, ONCE DAILY FOR 21 DAYS THEN 7 DAYS OFF
     Route: 048
     Dates: start: 20221101
  5. ANASTROZOLE [Concomitant]
     Active Substance: ANASTROZOLE
     Dosage: UNK
  6. ASPIRIN [Concomitant]
     Active Substance: ASPIRIN
     Dosage: UNK
  7. ATORVASTATIN [Concomitant]
     Active Substance: ATORVASTATIN
     Dosage: UNK
  8. VITAMIN B12 [Concomitant]
     Active Substance: CYANOCOBALAMIN
     Dosage: GUMMIES CHW
  9. COENZYME Q10 [Concomitant]
     Active Substance: DIETARY SUPPLEMENT\UBIDECARENONE
     Dosage: UNK
  10. COREG [Concomitant]
     Active Substance: CARVEDILOL
     Dosage: UNK
  11. DOXYCYCLINE HYCLATE [Concomitant]
     Active Substance: DOXYCYCLINE HYCLATE
     Dosage: UNK
  12. ESCITALOPRAM [Concomitant]
     Active Substance: ESCITALOPRAM OXALATE
     Dosage: UNK
  13. LISINOPRIL [Concomitant]
     Active Substance: LISINOPRIL
     Dosage: UNK
  14. METHOCARBAMOL [Concomitant]
     Active Substance: METHOCARBAMOL
     Dosage: UNK
  15. PROBIOTICS NOS [Concomitant]
     Active Substance: PROBIOTICS NOS
     Dosage: UNK
  16. CARVEDILOL [Concomitant]
     Active Substance: CARVEDILOL
     Dosage: UNK
  17. IBUPROFEN [Concomitant]
     Active Substance: IBUPROFEN
     Dosage: UNK
  18. CALCIUM CITRATE [Concomitant]
     Active Substance: CALCIUM CITRATE
     Dosage: UNK
  19. ZOMETA [Concomitant]
     Active Substance: ZOLEDRONIC ACID
     Dosage: UNK

REACTIONS (8)
  - White blood cell count decreased [Recovered/Resolved]
  - Dry skin [Not Recovered/Not Resolved]
  - Headache [Unknown]
  - Insomnia [Not Recovered/Not Resolved]
  - COVID-19 [Not Recovered/Not Resolved]
  - Blood cholesterol decreased [Not Recovered/Not Resolved]
  - Oral pain [Not Recovered/Not Resolved]
  - Tongue disorder [Recovering/Resolving]

NARRATIVE: CASE EVENT DATE: 20220101
